FAERS Safety Report 19480864 (Version 1)
Quarter: 2021Q3

REPORT INFORMATION
  Report Type: Spontaneous
  Country: US (occurrence: US)
  Receive Date: 20210701
  Receipt Date: 20210701
  Transmission Date: 20211014
  Serious: No
  Sender: FDA-Public Use
  Company Number: US-TEVA-2021-US-1924294

PATIENT
  Sex: Female

DRUGS (1)
  1. AJOVY [Suspect]
     Active Substance: FREMANEZUMAB-VFRM
     Dosage: 225 MG / 1.5 ML, AUTOINJECTOR
     Route: 065

REACTIONS (5)
  - Device use issue [Unknown]
  - Accidental exposure to product [Unknown]
  - Migraine [Unknown]
  - Needle issue [Unknown]
  - Drug dose omission by device [Unknown]
